FAERS Safety Report 19624812 (Version 6)
Quarter: 2022Q4

REPORT INFORMATION
  Report Type: Spontaneous
  Country: US (occurrence: US)
  Receive Date: 20210728
  Receipt Date: 20221219
  Transmission Date: 20230113
  Serious: Yes (Other)
  Sender: FDA-Public Use
  Company Number: US-PFIZER INC-2021612381

PATIENT
  Age: 55 Year
  Sex: Female

DRUGS (4)
  1. XELJANZ XR [Suspect]
     Active Substance: TOFACITINIB CITRATE
     Indication: Rheumatoid arthritis
     Dosage: 11 MG, 1X/DAY (ONCE DAILY)
     Route: 048
     Dates: start: 202104, end: 202203
  2. XELJANZ XR [Suspect]
     Active Substance: TOFACITINIB CITRATE
     Dosage: 11 MG, DAILY
     Route: 048
     Dates: start: 20221020
  3. CHOLECALCIFEROL [Concomitant]
     Active Substance: CHOLECALCIFEROL
     Dosage: UNK
  4. FOLIC ACID [Concomitant]
     Active Substance: FOLIC ACID
     Dosage: UNK

REACTIONS (14)
  - Basal cell carcinoma [Unknown]
  - Skin cancer [Unknown]
  - Inner ear disorder [Unknown]
  - Gait inability [Unknown]
  - Product dose omission in error [Unknown]
  - Depressed mood [Unknown]
  - Discouragement [Unknown]
  - Swelling [Not Recovered/Not Resolved]
  - Pain [Recovering/Resolving]
  - Sensitivity to weather change [Unknown]
  - Muscle tightness [Unknown]
  - Musculoskeletal stiffness [Recovered/Resolved]
  - Blood calcium increased [Unknown]
  - COVID-19 [Unknown]

NARRATIVE: CASE EVENT DATE: 20210101
